FAERS Safety Report 8516644-1 (Version None)
Quarter: 2012Q3

REPORT INFORMATION
  Report Type: 
  Country: None (occurrence: None)
  Receive Date: 20120718
  Receipt Date: 20120710
  Transmission Date: 20120928
  Serious: Yes (Hospitalization, Other)
  Sender: FDA-Public Use
  Company Number: TR-US-EMD SERONO, INC.-7146571

PATIENT
  Age: 24 Year
  Sex: Female

DRUGS (2)
  1. GONAL-F [Suspect]
     Indication: IN VITRO FERTILISATION
  2. GONADOTROPIN RELEASING HORMONE (GNRH) [Suspect]
     Indication: IN VITRO FERTILISATION

REACTIONS (4)
  - OVARIAN CYST [None]
  - TWIN PREGNANCY [None]
  - CAESAREAN SECTION [None]
  - DEEP VEIN THROMBOSIS [None]
